FAERS Safety Report 6239267-6 (Version None)
Quarter: 2009Q2

REPORT INFORMATION
  Report Type: 
  Country: None (occurrence: None)
  Receive Date: 20090622
  Receipt Date: 20090613
  Transmission Date: 20091009
  Serious: Yes (Other)
  Sender: FDA-Public Use
  Company Number: ES-ROCHE-638066

PATIENT
  Sex: Male
  Weight: 31.8 kg

DRUGS (2)
  1. CELLCEPT [Suspect]
     Indication: LIVER TRANSPLANT
     Route: 048
     Dates: start: 20070101, end: 20090611
  2. ARANESP [Concomitant]
     Route: 058
     Dates: start: 20081223

REACTIONS (2)
  - ANAEMIA [None]
  - APLASIA PURE RED CELL [None]
